FAERS Safety Report 25607345 (Version 1)
Quarter: 2025Q3

REPORT INFORMATION
  Report Type: Spontaneous
  Country: BR (occurrence: BR)
  Receive Date: 20250725
  Receipt Date: 20250725
  Transmission Date: 20251021
  Serious: Yes (Other)
  Sender: AMGEN
  Company Number: BR-AMGEN-BRASP2025141654

PATIENT
  Age: 35 Year
  Sex: Female

DRUGS (1)
  1. AVSOLA [Suspect]
     Active Substance: INFLIXIMAB-AXXQ
     Indication: Crohn^s disease
     Dosage: UNK UNK, Q8WK ( 3 AMPOULES EVERY 8 WEEKS)
     Route: 065
     Dates: start: 2022

REACTIONS (4)
  - Colitis [Unknown]
  - Ileectomy [Unknown]
  - Therapeutic product effect decreased [Unknown]
  - Post procedural complication [Unknown]
